FAERS Safety Report 25296048 (Version 2)
Quarter: 2025Q4

REPORT INFORMATION
  Report Type: Spontaneous
  Country: US (occurrence: US)
  Receive Date: 20250511
  Receipt Date: 20251106
  Transmission Date: 20260118
  Serious: No
  Sender: SANOFI AVENTIS
  Company Number: US-SA-2025SA132411

PATIENT
  Age: 17 Year
  Sex: Male

DRUGS (1)
  1. DUPIXENT [Suspect]
     Active Substance: DUPILUMAB
     Indication: Dermatitis atopic
     Dosage: 300 MG, QOW
     Route: 058

REACTIONS (5)
  - Pruritus [Recovered/Resolved]
  - Rash [Not Recovered/Not Resolved]
  - Sleep disorder [Recovered/Resolved]
  - Eczema [Recovering/Resolving]
  - Therapeutic product effect incomplete [Unknown]
